FAERS Safety Report 19150993 (Version 1)
Quarter: 2021Q2

REPORT INFORMATION
  Report Type: Spontaneous
  Country: US (occurrence: US)
  Receive Date: 20210419
  Receipt Date: 20210419
  Transmission Date: 20210717
  Serious: Yes (Hospitalization, Disabling, Other)
  Sender: FDA-Public Use
  Company Number: US-SA-2021SA123965

PATIENT
  Age: 64 Year
  Sex: Female

DRUGS (2)
  1. LEMTRADA [Suspect]
     Active Substance: ALEMTUZUMAB
     Indication: MULTIPLE SCLEROSIS
     Dosage: UNK
     Route: 050
     Dates: start: 20180903, end: 20180907
  2. MAYZENT [Concomitant]
     Active Substance: SIPONIMOD
     Dosage: UNK
     Dates: start: 201911

REACTIONS (5)
  - Weight decreased [Recovered/Resolved]
  - Myelodysplastic syndrome [Recovering/Resolving]
  - Anaemia [Recovering/Resolving]
  - Pancytopenia [Recovering/Resolving]
  - Hemiparesis [Recovered/Resolved]

NARRATIVE: CASE EVENT DATE: 201809
